FAERS Safety Report 9899252 (Version 1)
Quarter: 2014Q1

REPORT INFORMATION
  Report Type: Spontaneous
  Country: DK (occurrence: CH)
  Receive Date: 20140214
  Receipt Date: 20140214
  Transmission Date: 20141002
  Serious: Yes (Life-Threatening, Hospitalization)
  Sender: FDA-Public Use
  Company Number: CH-FRI-1000054280

PATIENT
  Age: 27 Year
  Sex: Female
  Weight: 77 kg

DRUGS (3)
  1. CITALOPRAM [Suspect]
     Indication: DEPRESSION
     Route: 048
     Dates: start: 201310
  2. DEANXIT DRAGEES [Suspect]
     Indication: ANXIETY DISORDER
     Route: 048
     Dates: start: 2003, end: 20131118
  3. GYSELLE [Suspect]
     Indication: CONTRACEPTION
     Route: 048
     Dates: start: 2009, end: 20131117

REACTIONS (7)
  - Embolism [Unknown]
  - Pelvic venous thrombosis [Unknown]
  - Oedema [Unknown]
  - Tachycardia [Unknown]
  - Electrocardiogram abnormal [Unknown]
  - Pain in extremity [Unknown]
  - Local swelling [Unknown]
